FAERS Safety Report 8001638-5 (Version None)
Quarter: 2011Q4

REPORT INFORMATION
  Report Type: 
  Country: None (occurrence: None)
  Receive Date: 20111222
  Receipt Date: 20111206
  Transmission Date: 20120403
  Serious: Yes (Death)
  Sender: FDA-Public Use
  Company Number: FR-ROCHE-1019368

PATIENT
  Age: 62 Year
  Sex: Female
  Weight: 47 kg

DRUGS (3)
  1. AVASTIN [Suspect]
     Indication: BREAST CANCER
     Dosage: MOST RECENT DOSE OF BEVACIZUMAB PRIOR TO SAE 17 NOV 2011.
     Route: 042
     Dates: start: 20111020
  2. PACLITAXEL [Suspect]
     Indication: BREAST CANCER
     Dosage: MOST RECENT DOSE OF PACLITAXEL PRIOR TO SAE 24 NOV 2011
     Route: 042
     Dates: start: 20111020
  3. BLINDED METMAB [Suspect]
     Indication: BREAST CANCER
     Dates: start: 20111020

REACTIONS (1)
  - HAEMORRHAGIC TUMOUR NECROSIS [None]
